FAERS Safety Report 23495889 (Version 1)
Quarter: 2024Q1

REPORT INFORMATION
  Report Type: Spontaneous
  Country: US (occurrence: US)
  Receive Date: 20240207
  Receipt Date: 20240207
  Transmission Date: 20240410
  Serious: Yes (Death, Other)
  Sender: FDA-Public Use
  Company Number: US-INCYTE CORPORATION-2024IN001158

PATIENT

DRUGS (1)
  1. ZYNYZ [Suspect]
     Active Substance: RETIFANLIMAB-DLWR
     Dosage: 500 MILLIGRAM, INTRAVENOUS INFUSION OVER 30 MINUTES EVERY 4 WEEKS
     Route: 042

REACTIONS (1)
  - Death [Fatal]

NARRATIVE: CASE EVENT DATE: 20231201
